FAERS Safety Report 8471400-8 (Version None)
Quarter: 2012Q2

REPORT INFORMATION
  Report Type: 
  Country: None (occurrence: None)
  Receive Date: 20120627
  Receipt Date: 20120625
  Transmission Date: 20120825
  Serious: Yes (Other)
  Sender: FDA-Public Use
  Company Number: GB-ROCHE-1079103

PATIENT
  Sex: Female
  Weight: 75 kg

DRUGS (4)
  1. ACTEMRA [Suspect]
     Indication: RHEUMATOID ARTHRITIS
     Route: 042
     Dates: start: 20120223, end: 20120405
  2. LANSOPRAZOLE [Concomitant]
  3. MAXOLON [Concomitant]
     Dosage: FREQUENCY PRN
     Route: 048
  4. ACETAMINOPHEN [Concomitant]
     Indication: ANALGESIC THERAPY
     Dosage: FREQUENCY QDS
     Route: 048

REACTIONS (1)
  - DIARRHOEA [None]
